FAERS Safety Report 8797102 (Version 1)
Quarter: 2012Q4

REPORT INFORMATION
  Report Type: 
  Country: BE (occurrence: BE)
  Receive Date: 20120919
  Receipt Date: 20120919
  Transmission Date: 20130627
  Serious: Yes (Hospitalization)
  Sender: FDA-Public Use
  Company Number: BE-VIIV HEALTHCARE LIMITED-B0830967A

PATIENT
  Age: 51 Year
  Sex: Male

DRUGS (2)
  1. KIVEXA [Suspect]
     Indication: PRODUCT USED FOR UNKNOWN INDICATION
     Dosage: 20TAB per day
     Route: 065
  2. STOCRIN [Suspect]
     Indication: PRODUCT USED FOR UNKNOWN INDICATION
     Dosage: 20TAB per day
     Route: 065

REACTIONS (3)
  - Suicide attempt [Unknown]
  - Atrioventricular block second degree [Recovered/Resolved]
  - Blood potassium decreased [Unknown]
